FAERS Safety Report 6204373-9 (Version None)
Quarter: 2009Q2

REPORT INFORMATION
  Report Type: 
  Country: None (occurrence: None)
  Receive Date: 20090521
  Receipt Date: 20090511
  Transmission Date: 20091009
  Serious: Yes (Other)
  Sender: FDA-Public Use
  Company Number: 2006-03-2058

PATIENT
  Age: 48 Year
  Sex: Male

DRUGS (3)
  1. DESLORATADINE [Suspect]
     Indication: SEASONAL ALLERGY
     Dosage: 5 MG; BID; PO
     Route: 048
     Dates: start: 20060326, end: 20060326
  2. PHENYTOIN [Concomitant]
  3. VALPROIC ACID [Concomitant]

REACTIONS (1)
  - EPILEPSY [None]
